FAERS Safety Report 10142531 (Version 1)
Quarter: 2014Q2

REPORT INFORMATION
  Report Type: Spontaneous
  Country: US (occurrence: US)
  Receive Date: 20140430
  Receipt Date: 20140430
  Transmission Date: 20141212
  Serious: Yes (Death)
  Sender: FDA-Public Use
  Company Number: US-BRISTOL-MYERS SQUIBB COMPANY-20667598

PATIENT
  Age: 27 Year
  Sex: Male

DRUGS (1)
  1. ABILIFY [Suspect]
     Indication: ANXIETY
     Route: 048

REACTIONS (2)
  - Death [Fatal]
  - Off label use [Unknown]
